FAERS Safety Report 15130451 (Version 6)
Quarter: 2022Q3

REPORT INFORMATION
  Report Type: Spontaneous
  Country: DE (occurrence: None)
  Receive Date: 20180711
  Receipt Date: 20220805
  Transmission Date: 20221026
  Serious: Yes (Hospitalization)
  Sender: FDA-Public Use
  Company Number: DE-NODEN PHARMA DAC-NOD-2018-000049

PATIENT
  Age: 5 Year
  Sex: Female

DRUGS (47)
  1. ALISKIREN [Suspect]
     Active Substance: ALISKIREN
     Indication: Hypertension
     Dosage: UNKNOWN
     Route: 065
  2. ALISKIREN [Suspect]
     Active Substance: ALISKIREN
     Dosage: UNKNOWN
     Route: 065
  3. ALISKIREN [Suspect]
     Active Substance: ALISKIREN
     Dosage: UNKNOWN
     Route: 065
  4. MOXONIDINE [Suspect]
     Active Substance: MOXONIDINE
     Indication: Hypertension
     Dosage: UNKNOWN
     Route: 065
  5. MOXONIDINE [Suspect]
     Active Substance: MOXONIDINE
     Dosage: UNKNOWN
     Route: 065
  6. MOXONIDINE [Suspect]
     Active Substance: MOXONIDINE
     Dosage: UNKNOWN
     Route: 065
  7. FUROSEMIDE [Suspect]
     Active Substance: FUROSEMIDE
     Indication: Hypertension
     Dosage: UNKNOWN
     Route: 048
  8. FUROSEMIDE [Suspect]
     Active Substance: FUROSEMIDE
     Dosage: UNK
     Route: 048
  9. FUROSEMIDE [Suspect]
     Active Substance: FUROSEMIDE
     Dosage: UNK
     Route: 048
  10. FUROSEMIDE [Suspect]
     Active Substance: FUROSEMIDE
  11. FUROSEMIDE [Suspect]
     Active Substance: FUROSEMIDE
  12. FUROSEMIDE [Suspect]
     Active Substance: FUROSEMIDE
  13. FUROSEMIDE [Suspect]
     Active Substance: FUROSEMIDE
  14. FUROSEMIDE [Suspect]
     Active Substance: FUROSEMIDE
  15. IRBESARTAN [Suspect]
     Active Substance: IRBESARTAN
     Indication: Hypertension
     Dosage: UNKNOWN
     Route: 065
  16. IRBESARTAN [Suspect]
     Active Substance: IRBESARTAN
     Dosage: UNK
     Route: 065
  17. IRBESARTAN [Suspect]
     Active Substance: IRBESARTAN
     Dosage: UNK
     Route: 065
  18. IRBESARTAN [Suspect]
     Active Substance: IRBESARTAN
  19. IRBESARTAN [Suspect]
     Active Substance: IRBESARTAN
  20. IRBESARTAN [Suspect]
     Active Substance: IRBESARTAN
  21. IRBESARTAN [Suspect]
     Active Substance: IRBESARTAN
  22. IRBESARTAN [Suspect]
     Active Substance: IRBESARTAN
  23. IRBESARTAN [Suspect]
     Active Substance: IRBESARTAN
  24. NIFEDIPINE [Suspect]
     Active Substance: NIFEDIPINE
     Indication: Hypertension
     Dosage: UNKNOWN
     Route: 048
  25. NIFEDIPINE [Suspect]
     Active Substance: NIFEDIPINE
     Dosage: UNK
     Route: 048
  26. NIFEDIPINE [Suspect]
     Active Substance: NIFEDIPINE
     Dosage: UNK
     Route: 048
  27. ENALAPRIL MALEATE [Suspect]
     Active Substance: ENALAPRIL MALEATE
     Indication: Hypertension
     Dosage: UNKNOWN
     Route: 048
  28. ENALAPRIL MALEATE [Suspect]
     Active Substance: ENALAPRIL MALEATE
  29. ENALAPRIL MALEATE [Suspect]
     Active Substance: ENALAPRIL MALEATE
  30. ENALAPRIL MALEATE [Suspect]
     Active Substance: ENALAPRIL MALEATE
  31. ENALAPRIL MALEATE [Suspect]
     Active Substance: ENALAPRIL MALEATE
  32. ENALAPRIL MALEATE [Suspect]
     Active Substance: ENALAPRIL MALEATE
  33. ENALAPRIL MALEATE [Suspect]
     Active Substance: ENALAPRIL MALEATE
  34. ENALAPRIL MALEATE [Suspect]
     Active Substance: ENALAPRIL MALEATE
  35. ENALAPRIL MALEATE [Suspect]
     Active Substance: ENALAPRIL MALEATE
  36. ENALAPRIL MALEATE [Suspect]
     Active Substance: ENALAPRIL MALEATE
  37. LERCANIDIPINE [Suspect]
     Active Substance: LERCANIDIPINE
     Indication: Hypertension
     Dosage: UNKNOWN
     Route: 065
  38. LERCANIDIPINE [Suspect]
     Active Substance: LERCANIDIPINE
     Dosage: UNK
     Route: 065
  39. LERCANIDIPINE [Suspect]
     Active Substance: LERCANIDIPINE
     Dosage: UNK
     Route: 065
  40. VALPROATE SODIUM [Concomitant]
     Active Substance: VALPROATE SODIUM
     Indication: Seizure
     Dosage: UNKNOWN
     Route: 065
  41. VALPROATE SODIUM [Concomitant]
     Active Substance: VALPROATE SODIUM
     Indication: Epilepsy
  42. DEXAMETHASONE [Concomitant]
     Active Substance: DEXAMETHASONE
     Indication: Inflammation
     Dosage: UNKNOWN
     Route: 048
  43. DEXAMETHASONE [Concomitant]
     Active Substance: DEXAMETHASONE
     Dosage: UNK
     Route: 065
  44. DEXAMETHASONE [Concomitant]
     Active Substance: DEXAMETHASONE
     Dosage: UNK
     Route: 048
  45. DEXAMETHASONE [Concomitant]
     Active Substance: DEXAMETHASONE
     Dosage: UNK
     Route: 065
  46. DEXAMETHASONE [Concomitant]
     Active Substance: DEXAMETHASONE
     Dosage: UNK
     Route: 048
  47. DEXAMETHASONE [Concomitant]
     Active Substance: DEXAMETHASONE
     Dosage: UNK
     Route: 065

REACTIONS (3)
  - Blood pressure increased [Unknown]
  - Product use issue [Unknown]
  - Drug ineffective [Unknown]
